FAERS Safety Report 9723041 (Version 1)
Quarter: 2013Q4

REPORT INFORMATION
  Report Type: Spontaneous
  Country: ES (occurrence: None)
  Receive Date: 20131126
  Receipt Date: 20131126
  Transmission Date: 20140711
  Serious: Yes (Hospitalization)
  Sender: FDA-Public Use
  Company Number: 2013AP009769

PATIENT
  Age: 80 Year
  Sex: Male

DRUGS (8)
  1. ENALAPRIL MALEATE AND HYDROCHLOROTHIAZIDE [Suspect]
     Indication: HYPERTENSION
     Route: 048
     Dates: start: 201305, end: 20130221
  2. ATENOLOL (ATENOLOL) [Concomitant]
  3. DUTASTERIDE (DUTASTERIDE) [Concomitant]
  4. OMEPRAZOLE (OMEPRAZOLE) [Concomitant]
  5. CLORAZEPATE DIPOTASSIUM (CLORAZEPATE DIPOTASSIUM) [Concomitant]
  6. METAMIZOL  /06276702/ (METAMIZOLE MAGNESIUM) [Concomitant]
  7. TRANSTEC (BUPERENORPHINE) [Concomitant]
  8. FERROPROTINA (FERRITIN) [Concomitant]

REACTIONS (4)
  - Renal failure acute [None]
  - Fall [None]
  - Asthenia [None]
  - Malaise [None]
